FAERS Safety Report 20021232 (Version 1)
Quarter: 2021Q4

REPORT INFORMATION
  Report Type: Spontaneous
  Country: US (occurrence: US)
  Receive Date: 20211101
  Receipt Date: 20211101
  Transmission Date: 20220303
  Serious: Yes (Death, Hospitalization)
  Sender: FDA-Public Use
  Company Number: US-NOVARTISPH-NVSC2021US247897

PATIENT
  Age: 82 Year
  Sex: Male

DRUGS (2)
  1. RANITIDINE [Suspect]
     Active Substance: RANITIDINE
     Indication: Dyspepsia
     Dosage: 300 MG, BID
     Route: 048
     Dates: end: 202002
  2. RANITIDINE [Suspect]
     Active Substance: RANITIDINE
     Indication: Dyspepsia
     Dosage: 300 MG, BID
     Route: 048
     Dates: end: 202002

REACTIONS (6)
  - Colorectal cancer [Fatal]
  - Hepatic cancer [Fatal]
  - Lung neoplasm malignant [Fatal]
  - Gallbladder cancer [Fatal]
  - Lymphoma [Fatal]
  - Bone cancer [Fatal]

NARRATIVE: CASE EVENT DATE: 20190901
